FAERS Safety Report 18438972 (Version 8)
Quarter: 2021Q4

REPORT INFORMATION
  Report Type: Report from Study
  Country: BE (occurrence: BE)
  Receive Date: 20201029
  Receipt Date: 20211230
  Transmission Date: 20220303
  Serious: Yes (Hospitalization)
  Sender: FDA-Public Use
  Company Number: BE-ABBVIE-20K-013-3605700-00

PATIENT
  Age: 73 Year
  Sex: Female
  Weight: 61 kg

DRUGS (10)
  1. CARBIDOPA\LEVODOPA [Suspect]
     Active Substance: CARBIDOPA\LEVODOPA
     Indication: Parkinson^s disease
     Dosage: UNKNOWN DOSAGES
     Route: 050
     Dates: start: 20190408, end: 20191030
  2. CARBIDOPA\LEVODOPA [Suspect]
     Active Substance: CARBIDOPA\LEVODOPA
     Dosage: MD 11ML, CD 4.4ML/HR DURING 16HRS, ED 2ML
     Route: 050
     Dates: start: 20191030, end: 20200204
  3. CARBIDOPA\LEVODOPA [Suspect]
     Active Substance: CARBIDOPA\LEVODOPA
     Dosage: MD 11ML, CD 4.6ML/HR DURING 16HRS, ED 2ML
     Route: 050
     Dates: start: 20200204, end: 20210316
  4. CARBIDOPA\LEVODOPA [Suspect]
     Active Substance: CARBIDOPA\LEVODOPA
     Dosage: MD 12ML, CD 4.6ML/HR DURING 16HRS, ED 2ML
     Route: 050
     Dates: start: 20210316, end: 20211019
  5. CARBIDOPA\LEVODOPA [Suspect]
     Active Substance: CARBIDOPA\LEVODOPA
     Dosage: MD 12.0 ML; CD 4.8 ML/HR DURING 16 HOURS; ED 2.0 ML
     Route: 050
     Dates: start: 20211019, end: 20211223
  6. CARBIDOPA\LEVODOPA [Suspect]
     Active Substance: CARBIDOPA\LEVODOPA
     Dosage: MD 12.0 ML; CD 4.7 ML/HR DURING 16 HOURS; ED 2.0 ML
     Route: 050
     Dates: start: 20211223
  7. BENSERAZIDE\LEVODOPA [Concomitant]
     Active Substance: BENSERAZIDE\LEVODOPA
     Indication: Parkinson^s disease
     Dosage: FORM STRENGTH: 100MG/25MG; UNIT DOSE: 3 CAPSULE
     Route: 048
  8. PRAMIPEXOLE [Concomitant]
     Active Substance: PRAMIPEXOLE
     Indication: Parkinson^s disease
     Dosage: STOPPED PRIOR TO DUODOPA THERAPY
     Route: 048
  9. PRAMIPEXOLE [Concomitant]
     Active Substance: PRAMIPEXOLE
     Route: 048
     Dates: start: 202010
  10. FLUDROCORTISONE [Concomitant]
     Active Substance: FLUDROCORTISONE
     Indication: Orthostatic hypotension
     Route: 048

REACTIONS (7)
  - Gastrointestinal disorder [Unknown]
  - Weight decreased [Recovering/Resolving]
  - Device dislocation [Recovered/Resolved]
  - Orthostatic hypotension [Recovering/Resolving]
  - Abdominal pain [Unknown]
  - Confusional state [Unknown]
  - Vomiting [Unknown]
